APPROVED DRUG PRODUCT: CARNITOR
Active Ingredient: LEVOCARNITINE
Strength: 1GM/10ML
Dosage Form/Route: SOLUTION;ORAL
Application: N018948 | Product #002
Applicant: LEADIANT BIOSCIENCES INC
Approved: Apr 27, 1988 | RLD: No | RS: No | Type: DISCN